FAERS Safety Report 17257059 (Version 4)
Quarter: 2020Q4

REPORT INFORMATION
  Report Type: Report from Study
  Country: US (occurrence: US)
  Receive Date: 20200110
  Receipt Date: 20201128
  Transmission Date: 20210113
  Serious: No
  Sender: FDA-Public Use
  Company Number: NVSC2020US004683

PATIENT
  Sex: Male

DRUGS (1)
  1. COSENTYX [Suspect]
     Active Substance: SECUKINUMAB
     Indication: PRODUCT USED FOR UNKNOWN INDICATION
     Dosage: UNK
     Route: 065

REACTIONS (1)
  - Condition aggravated [Unknown]
